FAERS Safety Report 4311333-1 (Version None)
Quarter: 2004Q1

REPORT INFORMATION
  Report Type: 
  Country: None (occurrence: None)
  Receive Date: 20040302
  Receipt Date: 20040302
  Transmission Date: 20041129
  Serious: Yes (Hospitalization)
  Sender: FDA-Public Use
  Company Number: None

PATIENT
  Age: 21 Year
  Sex: Male
  Weight: 100.2449 kg

DRUGS (1)
  1. HYZAAR [Suspect]
     Dosage: 1 TABLET X1 ORAL
     Route: 048
     Dates: start: 20040124, end: 20040124

REACTIONS (2)
  - FALL [None]
  - SPEECH DISORDER [None]
